FAERS Safety Report 7459685-8 (Version None)
Quarter: 2011Q2

REPORT INFORMATION
  Report Type: 
  Country: None (occurrence: None)
  Receive Date: 20110505
  Receipt Date: 20110422
  Transmission Date: 20111010
  Serious: Yes (Other)
  Sender: FDA-Public Use
  Company Number: US-ELI_LILLY_AND_COMPANY-US201104006734

PATIENT
  Sex: Female

DRUGS (4)
  1. CALTRATE [Concomitant]
     Dosage: UNK
  2. ALLOPURINOL [Concomitant]
  3. FORTEO [Suspect]
     Indication: OSTEOPOROSIS
     Dosage: 20 UG, QD
     Route: 065
     Dates: start: 20100901
  4. ALTOPREV [Concomitant]

REACTIONS (1)
  - BREAST CANCER [None]
